FAERS Safety Report 24567661 (Version 2)
Quarter: 2025Q1

REPORT INFORMATION
  Report Type: Spontaneous
  Country: US (occurrence: US)
  Receive Date: 20241031
  Receipt Date: 20250108
  Transmission Date: 20250409
  Serious: Yes (Other)
  Sender: Kilitch Healthcare
  Company Number: US-KHC-000396

PATIENT
  Age: 29 Year
  Sex: Male

DRUGS (1)
  1. CVS LUBRICANT EYE DROPS [Suspect]
     Active Substance: CARBOXYMETHYLCELLULOSE SODIUM
     Indication: Product used for unknown indication
     Dosage: TWO DROPS 3-5 A DAY
     Route: 065
     Dates: start: 20230928, end: 20231027

REACTIONS (4)
  - Recalled product administered [Unknown]
  - Keratitis bacterial [Unknown]
  - Conjunctivitis [Recovering/Resolving]
  - Blindness transient [Recovering/Resolving]

NARRATIVE: CASE EVENT DATE: 20231001
